FAERS Safety Report 24765710 (Version 1)
Quarter: 2024Q4

REPORT INFORMATION
  Report Type: Spontaneous
  Country: US (occurrence: US)
  Receive Date: 20241223
  Receipt Date: 20241223
  Transmission Date: 20250115
  Serious: Yes (Other)
  Sender: TEVA
  Company Number: US-TEVA-VS-3277562

PATIENT
  Age: 24 Year
  Sex: Female
  Weight: 97.522 kg

DRUGS (1)
  1. UZEDY [Suspect]
     Active Substance: RISPERIDONE
     Indication: Product used for unknown indication
     Route: 065

REACTIONS (4)
  - Pituitary tumour [Unknown]
  - Blood prolactin increased [Unknown]
  - Heavy menstrual bleeding [Unknown]
  - Thrombosis [Unknown]

NARRATIVE: CASE EVENT DATE: 20240101
